FAERS Safety Report 5019021-3 (Version None)
Quarter: 2006Q2

REPORT INFORMATION
  Report Type: 
  Country: None (occurrence: None)
  Receive Date: 20060606
  Receipt Date: 20060529
  Transmission Date: 20061013
  Serious: Yes (Hospitalization)
  Sender: FDA-Public Use
  Company Number: NL-GLAXOSMITHKLINE-B0426335A

PATIENT
  Age: 71 Year
  Sex: Female
  Weight: 70 kg

DRUGS (3)
  1. PAROXETINE HCL [Suspect]
     Indication: DEPRESSION
     Dosage: 20MG PER DAY
     Route: 048
     Dates: start: 20060401
  2. MOGADON [Concomitant]
     Dosage: 5MG PER DAY
     Route: 048
     Dates: start: 20060404
  3. OXAZEPAM [Concomitant]
     Dosage: 10MG PER DAY
     Route: 048
     Dates: start: 20060404

REACTIONS (2)
  - DEPRESSION [None]
  - INSOMNIA [None]
